FAERS Safety Report 8079692 (Version 3)
Quarter: 2012Q4

REPORT INFORMATION
  Report Type: 
  Country: US (occurrence: US)
  Receive Date: 20110808
  Receipt Date: 20121221
  Transmission Date: 20130627
  Serious: Yes (Hospitalization, Other)
  Sender: FDA-Public Use
  Company Number: US-US-EMD SERONO, INC.-7074533

PATIENT
  Age: 64 Year
  Sex: Female
  Weight: 68 kg

DRUGS (3)
  1. REBIF [Suspect]
     Indication: MULTIPLE SCLEROSIS
     Route: 058
     Dates: start: 20070321, end: 201209
  2. REBIF [Suspect]
     Route: 058
     Dates: start: 201209
  3. BACLOFEN [Concomitant]
     Indication: MUSCLE SPASTICITY
     Dosage: 6 tablets daily

REACTIONS (6)
  - Kidney infection [Recovering/Resolving]
  - Cystitis [Recovering/Resolving]
  - Renal impairment [Recovering/Resolving]
  - Hypertension [Not Recovered/Not Resolved]
  - Kidney fibrosis [Not Recovered/Not Resolved]
  - Fungal infection [Recovered/Resolved]
